FAERS Safety Report 5529340-X (Version None)
Quarter: 2007Q4

REPORT INFORMATION
  Report Type: 
  Country: None (occurrence: None)
  Receive Date: 20071129
  Receipt Date: 20071123
  Transmission Date: 20080405
  Serious: Yes (Death)
  Sender: FDA-Public Use
  Company Number: FR-MERCK-0711FRA00090

PATIENT
  Age: 77 Year
  Sex: Male

DRUGS (7)
  1. INVANZ [Suspect]
     Indication: ABDOMINAL INFECTION
     Route: 042
     Dates: start: 20071017, end: 20071020
  2. CEFTRIAXONE SODIUM [Concomitant]
     Route: 051
  3. AMIKACIN SULFATE [Concomitant]
     Route: 051
  4. ACETAMINOPHEN [Concomitant]
     Route: 051
  5. TRAMADOL HYDROCHLORIDE [Concomitant]
     Route: 048
  6. METOCLOPRAMIDE HYDROCHLORIDE [Concomitant]
     Route: 051
  7. ESOMEPRAZOLE MAGNESIUM [Concomitant]
     Route: 048

REACTIONS (2)
  - DEATH [None]
  - JAUNDICE CHOLESTATIC [None]
